FAERS Safety Report 13419189 (Version 1)
Quarter: 2017Q2

REPORT INFORMATION
  Report Type: Spontaneous
  Country: US (occurrence: US)
  Receive Date: 20170407
  Receipt Date: 20170407
  Transmission Date: 20170830
  Serious: Yes (Other)
  Sender: FDA-Public Use
  Company Number: US-JNJFOC-20170307554

PATIENT
  Sex: Male

DRUGS (8)
  1. RISPERDAL CONSTA [Suspect]
     Active Substance: RISPERIDONE
     Indication: SCHIZOAFFECTIVE DISORDER
     Route: 030
     Dates: start: 201607, end: 201702
  2. RISPERDAL [Suspect]
     Active Substance: RISPERIDONE
     Indication: BIPOLAR DISORDER
     Route: 048
     Dates: start: 201607, end: 201610
  3. QUERCETIN [Concomitant]
     Active Substance: QUERCETIN
     Indication: MUSCULOSKELETAL STIFFNESS
     Route: 065
  4. RISPERDAL CONSTA [Suspect]
     Active Substance: RISPERIDONE
     Indication: BIPOLAR DISORDER
     Route: 030
     Dates: start: 201607, end: 201702
  5. VITAMIN B6 [Concomitant]
     Active Substance: PYRIDOXINE HYDROCHLORIDE
     Indication: NUTRITIONAL SUPPLEMENTATION
     Route: 065
  6. ZINC. [Concomitant]
     Active Substance: ZINC
     Route: 065
  7. RISPERDAL [Suspect]
     Active Substance: RISPERIDONE
     Indication: SCHIZOAFFECTIVE DISORDER
     Route: 048
     Dates: start: 201607, end: 201610
  8. VITAMIN E NOS [Concomitant]
     Active Substance: .ALPHA.-TOCOPHEROL
     Indication: BLOOD PROLACTIN ABNORMAL
     Route: 065

REACTIONS (7)
  - Musculoskeletal stiffness [Not Recovered/Not Resolved]
  - Weight increased [Not Recovered/Not Resolved]
  - Hypersomnia [Unknown]
  - Gynaecomastia [Not Recovered/Not Resolved]
  - Sedation [Unknown]
  - Diabetes mellitus [Not Recovered/Not Resolved]
  - Hyperphagia [Recovering/Resolving]

NARRATIVE: CASE EVENT DATE: 2016
